FAERS Safety Report 23867954 (Version 1)
Quarter: 2024Q2

REPORT INFORMATION
  Report Type: Spontaneous
  Country: ES (occurrence: ES)
  Receive Date: 20240517
  Receipt Date: 20240517
  Transmission Date: 20240716
  Serious: Yes (Other)
  Sender: FDA-Public Use
  Company Number: None

PATIENT
  Age: 84 Year
  Sex: Female

DRUGS (3)
  1. GABAPENTIN [Interacting]
     Active Substance: GABAPENTIN
     Indication: Trigeminal neuralgia
     Dosage: 800 MILLIGRAM, Q8H (800 MG / 8 HOURS)
     Route: 048
     Dates: start: 20170707
  2. TEGRETOL [Interacting]
     Active Substance: CARBAMAZEPINE
     Indication: Trigeminal neuralgia
     Dosage: 100 MILLIGRAM, BID (50 TABLETS, 100 MG / 12 HOURS)
     Route: 048
     Dates: start: 20240221, end: 20240304
  3. HYDROCHLOROTHIAZIDE\TELMISARTAN [Interacting]
     Active Substance: HYDROCHLOROTHIAZIDE\TELMISARTAN
     Indication: Hypertension
     Dosage: 1 DOSAGE FORM, QD (28 TABLETS)
     Route: 048
     Dates: start: 20211110

REACTIONS (3)
  - Dizziness [Recovered/Resolved]
  - Hyponatraemia [Recovered/Resolved]
  - Drug interaction [Unknown]

NARRATIVE: CASE EVENT DATE: 20240228
